FAERS Safety Report 16322953 (Version 1)
Quarter: 2019Q2

REPORT INFORMATION
  Report Type: Spontaneous
  Country: US (occurrence: US)
  Receive Date: 20190517
  Receipt Date: 20190517
  Transmission Date: 20190711
  Serious: Yes (Hospitalization, Other)
  Sender: FDA-Public Use
  Company Number: US-AMGEN-USASP2019076348

PATIENT
  Sex: Female

DRUGS (2)
  1. PROCRIT [Suspect]
     Active Substance: ERYTHROPOIETIN
     Indication: NEPHROGENIC ANAEMIA
     Dosage: UNK
     Route: 065
     Dates: start: 2011
  2. IRON [Suspect]
     Active Substance: IRON
     Indication: BLOOD IRON ABNORMAL
     Dosage: UNK
     Route: 065
     Dates: start: 201905

REACTIONS (3)
  - Blood iron abnormal [Not Recovered/Not Resolved]
  - Cardiomyopathy [Unknown]
  - Syncope [Unknown]

NARRATIVE: CASE EVENT DATE: 201905
